FAERS Safety Report 5052978-3 (Version None)
Quarter: 2006Q3

REPORT INFORMATION
  Report Type: 
  Country: None (occurrence: None)
  Receive Date: 20060712
  Receipt Date: 20060629
  Transmission Date: 20061208
  Serious: Yes (Other)
  Sender: FDA-Public Use
  Company Number: 2006063590

PATIENT
  Sex: Female

DRUGS (10)
  1. LYRICA [Suspect]
     Indication: COMPLEX REGIONAL PAIN SYNDROME
     Dosage: 300 MG (150 MG, 2 IN 1 D)
     Dates: start: 20051201
  2. LYRICA [Suspect]
     Indication: RADICULOPATHY
     Dosage: 300 MG (150 MG, 2 IN 1 D)
     Dates: start: 20051201
  3. LIPITOR [Concomitant]
  4. NORVASC [Concomitant]
  5. REVLIMID (UK-14,275) [Concomitant]
  6. EFFEXOR [Concomitant]
  7. METHADONE HCL [Concomitant]
  8. OXYCODONE HCL [Concomitant]
  9. NITROFURANTOIN [Concomitant]
  10. ASPIRIN [Concomitant]

REACTIONS (4)
  - DISEASE PROGRESSION [None]
  - HYPOAESTHESIA [None]
  - MYALGIA [None]
  - THROMBOCYTOPENIA [None]
